FAERS Safety Report 23674617 (Version 5)
Quarter: 2024Q2

REPORT INFORMATION
  Report Type: Spontaneous
  Country: GT (occurrence: GT)
  Receive Date: 20240326
  Receipt Date: 20240430
  Transmission Date: 20240716
  Serious: No
  Sender: FDA-Public Use
  Company Number: GT-PFIZER INC-PV202400032824

PATIENT
  Age: 7 Year
  Sex: Female

DRUGS (1)
  1. GENOTROPIN [Suspect]
     Active Substance: SOMATROPIN
     Dosage: EVERY 24 HOURS

REACTIONS (3)
  - Device mechanical issue [Unknown]
  - Device difficult to use [Unknown]
  - Drug dose omission by device [Unknown]
